FAERS Safety Report 13215349 (Version 1)
Quarter: 2017Q1

REPORT INFORMATION
  Report Type: Spontaneous
  Country: US (occurrence: US)
  Receive Date: 20170210
  Receipt Date: 20170210
  Transmission Date: 20170428
  Serious: No
  Sender: FDA-Public Use
  Company Number: US-ROCHE-1754904

PATIENT
  Sex: Female
  Weight: 62.2 kg

DRUGS (1)
  1. XOLAIR [Suspect]
     Active Substance: OMALIZUMAB
     Indication: PRODUCT USED FOR UNKNOWN INDICATION
     Dosage: STARTED ABOUT 10 YEARS AGO
     Route: 058

REACTIONS (3)
  - Contusion [Unknown]
  - Skin haemorrhage [Unknown]
  - Skin irritation [Unknown]

NARRATIVE: CASE EVENT DATE: 2015
